FAERS Safety Report 6474241-6 (Version None)
Quarter: 2009Q4

REPORT INFORMATION
  Report Type: 
  Country: None (occurrence: None)
  Receive Date: 20091204
  Receipt Date: 20091125
  Transmission Date: 20100525
  Serious: Yes (Hospitalization, Other)
  Sender: FDA-Public Use
  Company Number: PHHY2009BR52041

PATIENT
  Sex: Female

DRUGS (4)
  1. TRILEPTAL [Suspect]
     Indication: EPILEPSY
     Dosage: 1 TABLET EVERY 8 HOURS
     Route: 048
     Dates: start: 20060101
  2. URBANYL [Concomitant]
     Indication: EPILEPSY
     Dosage: 1 TABLET EVERY 8 HOURS
     Route: 048
  3. DEPAKOTE [Concomitant]
     Indication: EPILEPSY
     Dosage: 1 DF, Q12H
     Route: 048
     Dates: start: 20091001, end: 20091125
  4. TOPIRAMATE [Concomitant]
     Indication: EPILEPSY
     Dosage: UNK
     Route: 048
     Dates: start: 20091125

REACTIONS (3)
  - CONVULSION [None]
  - PNEUMONIA ASPIRATION [None]
  - PYREXIA [None]
